FAERS Safety Report 11830774 (Version 1)
Quarter: 2015Q4

REPORT INFORMATION
  Report Type: Spontaneous
  Country: CH (occurrence: None)
  Receive Date: 20151211
  Receipt Date: 20151211
  Transmission Date: 20160305
  Serious: Yes (Other)
  Sender: FDA-Public Use
  Company Number: None

PATIENT
  Age: 68 Year
  Sex: Male
  Weight: 70 kg

DRUGS (2)
  1. LOCAL ANESTHESIA (XYLOCAINE) [Concomitant]
  2. XIAPEX SWEDISH ORPHAN BIOVITRUM [Suspect]
     Active Substance: COLLAGENASE CLOSTRIDIUM HISTOLYTICUM
     Indication: DUPUYTREN^S CONTRACTURE
     Dates: start: 20151026

REACTIONS (2)
  - Ecchymosis [None]
  - Lymphadenitis [None]

NARRATIVE: CASE EVENT DATE: 20151118
